FAERS Safety Report 22384655 (Version 6)
Quarter: 2023Q4

REPORT INFORMATION
  Report Type: Report from Study
  Country: AR (occurrence: AR)
  Receive Date: 20230530
  Receipt Date: 20231207
  Transmission Date: 20240109
  Serious: Yes (Hospitalization)
  Sender: FDA-Public Use
  Company Number: AR-AVEO PHARMACEUTICALS INC.-2023-AVEO-AR000401

PATIENT
  Age: 80 Year
  Sex: Male
  Weight: 59.7 kg

DRUGS (9)
  1. TIVOZANIB [Suspect]
     Active Substance: TIVOZANIB
     Indication: Renal cell carcinoma
     Dosage: 0.89 MG ONCE DAILY FOR 21 DAYS WITH 7 DAYS OFF TREATMENT
     Route: 048
     Dates: start: 20230414, end: 20230504
  2. NIVOLUMAB [Suspect]
     Active Substance: NIVOLUMAB
     Indication: Renal cell carcinoma
     Dosage: 480 MG OVER 30 MINUTES ONCE EVERY 4 WEEKS
     Route: 042
     Dates: start: 20230414, end: 20230512
  3. NIVOLUMAB [Suspect]
     Active Substance: NIVOLUMAB
     Dosage: 480 MG OVER 30 MINUTES ONCE EVERY 4 WEEKS
     Route: 042
     Dates: start: 20230608
  4. PROPRANOLOL HYDROCHLORIDE [Concomitant]
     Active Substance: PROPRANOLOL HYDROCHLORIDE
     Indication: Tachycardia
     Dosage: 40 MG, DAILY
     Dates: start: 201810
  5. AMLODIPINE [Concomitant]
     Active Substance: AMLODIPINE BESYLATE
     Indication: Hypertension
     Dosage: 5 MG, DAILY
     Dates: start: 201810
  6. CARVEDILOL [Concomitant]
     Active Substance: CARVEDILOL
     Indication: Hypertension
     Dosage: 12.5 MG, DAILY
     Dates: start: 201810
  7. HYDROCHLOROTHIAZIDE\LOSARTAN [Concomitant]
     Active Substance: HYDROCHLOROTHIAZIDE\LOSARTAN
     Indication: Hypertension
     Dosage: 12.5/50 MG, DAILY
     Dates: start: 201810
  8. ASPIRIN [Concomitant]
     Active Substance: ASPIRIN
     Indication: Prophylaxis
     Dosage: 100 MG, DAILY
     Dates: start: 201810
  9. Dutasterida + tansulosina [Concomitant]
     Indication: Benign prostatic hyperplasia
     Dosage: 0.5/0.4 MG, DAILY
     Dates: start: 202004

REACTIONS (1)
  - Hyponatraemia [Recovered/Resolved]

NARRATIVE: CASE EVENT DATE: 20230516
